FAERS Safety Report 7750448-2 (Version None)
Quarter: 2011Q3

REPORT INFORMATION
  Report Type: 
  Country: None (occurrence: None)
  Receive Date: 20110914
  Receipt Date: 20110906
  Transmission Date: 20111222
  Serious: Yes (Other)
  Sender: FDA-Public Use
  Company Number: CA-ELI_LILLY_AND_COMPANY-CA201109001373

PATIENT
  Age: 61 Year
  Sex: Female

DRUGS (4)
  1. VITAMINS NOS [Concomitant]
  2. NEXIUM [Concomitant]
     Dosage: UNK, EACH MORNING
  3. RANITIDINE [Concomitant]
     Dosage: 300 MG, EACH EVENING
  4. ADCIRCA [Suspect]
     Indication: PULMONARY ARTERIAL HYPERTENSION
     Dosage: 20 MG, BID
     Dates: start: 20101001, end: 20110801

REACTIONS (4)
  - LOCALISED INFECTION [None]
  - DIZZINESS [None]
  - DIARRHOEA [None]
  - HYPOTENSION [None]
